FAERS Safety Report 7743213-3 (Version None)
Quarter: 2011Q3

REPORT INFORMATION
  Report Type: 
  Country: None (occurrence: None)
  Receive Date: 20110912
  Receipt Date: 20110829
  Transmission Date: 20111222
  Serious: Yes (Hospitalization, Other)
  Sender: FDA-Public Use
  Company Number: CA-ELI_LILLY_AND_COMPANY-CA201108008451

PATIENT
  Sex: Female

DRUGS (6)
  1. ZYPREXA ZYDIS [Suspect]
     Indication: SCHIZOAFFECTIVE DISORDER BIPOLAR TYPE
     Dosage: 10 MG, EACH EVENING
  2. ATROPINE SULFATE [Concomitant]
     Dosage: 1 %, EACH EVENING
  3. ZYPREXA [Suspect]
     Dosage: 5 MG, UNKNOWN
  4. ZYPREXA [Suspect]
     Indication: SCHIZOAFFECTIVE DISORDER BIPOLAR TYPE
     Dosage: 15 MG, UNKNOWN
  5. ZYPREXA [Suspect]
     Dosage: 10 MG, UNKNOWN
  6. CLOZAPINE [Concomitant]

REACTIONS (4)
  - HYPERLIPIDAEMIA [None]
  - TYPE 2 DIABETES MELLITUS [None]
  - HEPATITIS C VIRUS TEST POSITIVE [None]
  - HYPOCHROMIC ANAEMIA [None]
